FAERS Safety Report 5412709-1 (Version None)
Quarter: 2007Q3

REPORT INFORMATION
  Report Type: 
  Country: None (occurrence: None)
  Receive Date: 20070809
  Receipt Date: 20070726
  Transmission Date: 20080115
  Serious: Yes (Disabling)
  Sender: FDA-Public Use
  Company Number: 156674ISR

PATIENT
  Age: 69 Year
  Sex: Female

DRUGS (8)
  1. FLUOROURACIL [Suspect]
     Dosage: 560 MG (CYCLICAL) INTRAVENOUS BOLUS; 3360 MG (CYCLICAL) INTRAVENOUS DRIP
     Route: 040
     Dates: start: 20060913, end: 20070221
  2. OXALIPLATIN [Suspect]
     Dosage: 119 MG (CYCLICAL) INTRAVENOUS
     Route: 042
     Dates: start: 20060913, end: 20070124
  3. SINEMET [Concomitant]
  4. ENTACAPONE [Concomitant]
  5. PIRIBEDIL [Concomitant]
  6. IMIPRAMINE HYDROCHLORIDE [Concomitant]
  7. VASOBRAL [Concomitant]
  8. TOCOPHERYL ACETATE [Concomitant]

REACTIONS (1)
  - NEUROPATHY PERIPHERAL [None]
